FAERS Safety Report 12162412 (Version 2)
Quarter: 2016Q1

REPORT INFORMATION
  Report Type: Spontaneous
  Country: US (occurrence: US)
  Receive Date: 20160309
  Receipt Date: 20160322
  Transmission Date: 20160526
  Serious: Yes (Other)
  Sender: FDA-Public Use
  Company Number: US-BIOGEN-2016BI00201539

PATIENT
  Sex: Female

DRUGS (1)
  1. TECFIDERA [Suspect]
     Active Substance: DIMETHYL FUMARATE
     Indication: MULTIPLE SCLEROSIS
     Route: 048

REACTIONS (7)
  - Skin discolouration [Unknown]
  - Influenza like illness [Unknown]
  - Vomiting [Unknown]
  - White blood cell count decreased [Unknown]
  - Adverse drug reaction [Recovered/Resolved]
  - Gastrointestinal disorder [Unknown]
  - Infection [Unknown]
